FAERS Safety Report 16560510 (Version 1)
Quarter: 2019Q3

REPORT INFORMATION
  Report Type: Spontaneous
  Country: US (occurrence: US)
  Receive Date: 20190530
  Receipt Date: 20190530
  Transmission Date: 20191004
  Serious: No
  Sender: FDA-Public Use
  Company Number: None

PATIENT

DRUGS (2)
  1. EPINEPHRINE 100MCG/10ML (10MCG/ML) [Suspect]
     Active Substance: EPINEPHRINE
     Dosage: ?          OTHER STRENGTH:100MCG/10ML;?
  2. EPINEPHRINE 100MCG/ML (100 MCG) [Suspect]
     Active Substance: EPINEPHRINE

REACTIONS (2)
  - Intercepted product dispensing error [None]
  - Intercepted product selection error [None]
